FAERS Safety Report 8480855-4 (Version None)
Quarter: 2012Q3

REPORT INFORMATION
  Report Type: 
  Country: None (occurrence: None)
  Receive Date: 20120702
  Receipt Date: 20120618
  Transmission Date: 20120928
  Serious: Yes (Death)
  Sender: FDA-Public Use
  Company Number: JP-TEVA-342177ISR

PATIENT
  Age: 61 Year
  Sex: Male

DRUGS (8)
  1. LINTACIN INJ [Concomitant]
     Indication: PNEUMONIA ASPIRATION
     Dosage: 400 MILLIGRAM;
     Route: 042
     Dates: start: 20120518, end: 20120527
  2. LACTEC [Concomitant]
     Indication: ELECTROLYTE SUBSTITUTION THERAPY
     Dosage: 500 ML;
     Route: 042
     Dates: start: 20120518, end: 20120527
  3. BFLUID INJECTION 500ML (L-LEUCINE, L-ISOLEUCINE, L-VALINE) [Concomitant]
     Indication: ELECTROLYTE SUBSTITUTION THERAPY
     Dosage: 500 ML;
     Route: 042
     Dates: start: 20120518, end: 20120531
  4. FUROSEMIDE [Suspect]
     Indication: URINE OUTPUT DECREASED
     Dosage: 20 MILLIGRAM;
     Dates: start: 20120529, end: 20120531
  5. PICILLIBACTA, INJ,1.5G [Concomitant]
     Indication: PNEUMONIA ASPIRATION
     Dosage: 6 GRAM;
     Route: 042
     Dates: start: 20120518, end: 20120527
  6. GLUCOSE 50%,INJ,20ML [Concomitant]
     Indication: HYPOGLYCAEMIA
     Dosage: 20 ML;
     Route: 042
     Dates: start: 20120519, end: 20120531
  7. DOPAMINE HCL [Concomitant]
     Indication: BLOOD PRESSURE MANAGEMENT
     Dosage: 5 ML;
     Route: 042
     Dates: start: 20120520, end: 20120531
  8. OTSUKA GLUCOSE INJECTION 5%,500ML [Concomitant]
     Indication: HYPOGLYCAEMIA
     Dosage: 500 ML;
     Route: 042
     Dates: start: 20120519, end: 20120530

REACTIONS (2)
  - PANCYTOPENIA [None]
  - DEATH [None]
